FAERS Safety Report 24559036 (Version 3)
Quarter: 2025Q3

REPORT INFORMATION
  Report Type: Report from Study
  Country: EU (occurrence: EU)
  Receive Date: 20241029
  Receipt Date: 20250809
  Transmission Date: 20251021
  Serious: Yes (Hospitalization, Other)
  Sender: ALEXION PHARMACEUTICALS
  Company Number: EU-ALXN-202410GLO022001BE

PATIENT
  Age: 9 Year
  Sex: Female
  Weight: 15 kg

DRUGS (3)
  1. SOLIRIS [Suspect]
     Active Substance: ECULIZUMAB
     Indication: Atypical haemolytic uraemic syndrome
  2. SOLIRIS [Suspect]
     Active Substance: ECULIZUMAB
     Dates: start: 20190704, end: 20220818
  3. SOLIRIS [Suspect]
     Active Substance: ECULIZUMAB
     Dates: start: 20220818, end: 20221110

REACTIONS (1)
  - Appendicitis [Recovered/Resolved]

NARRATIVE: CASE EVENT DATE: 20240913
